FAERS Safety Report 9057172 (Version 1)
Quarter: 2013Q1

REPORT INFORMATION
  Report Type: Spontaneous
  Country: IT (occurrence: IT)
  Receive Date: 20130131
  Receipt Date: 20130131
  Transmission Date: 20140127
  Serious: Yes (Hospitalization)
  Sender: FDA-Public Use
  Company Number: IT-PFIZER INC-2013038644

PATIENT
  Age: 47 Year
  Sex: Female

DRUGS (8)
  1. ALPRAZOLAM [Suspect]
     Dosage: 20 UNIT, TOTAL
     Route: 048
     Dates: start: 20120912, end: 20120912
  2. ZOLPIDEM TARTRATE [Suspect]
     Dosage: 30 UNIT, TOTAL
     Route: 048
     Dates: start: 20120912, end: 20120912
  3. LITHIUM CARBONATE [Concomitant]
  4. PREGABALIN [Concomitant]
  5. VALPROIC ACID [Concomitant]
  6. VENLAFAXINE HYDROCHLORIDE [Concomitant]
  7. CLOZAPINA [Concomitant]
  8. LEVOTIROXINA SODICA [Concomitant]

REACTIONS (2)
  - Sopor [Recovering/Resolving]
  - Toxicity to various agents [Unknown]
